FAERS Safety Report 21280309 (Version 1)
Quarter: 2022Q3

REPORT INFORMATION
  Report Type: Spontaneous
  Country: US (occurrence: US)
  Receive Date: 20220901
  Receipt Date: 20220901
  Transmission Date: 20221027
  Serious: No
  Sender: FDA-Public Use
  Company Number: US-BAUSCH-BL-2022-021321

PATIENT
  Age: 68 Year
  Sex: Female

DRUGS (2)
  1. DEXAMETHASONE\NEOMYCIN\POLYMYXIN B SULFATE [Suspect]
     Active Substance: DEXAMETHASONE\NEOMYCIN\POLYMYXIN B SULFATE
     Indication: Antibiotic therapy
     Dosage: ONE APPLICATION TO THE LEFT EYE LID TWICE DAILY
     Route: 047
     Dates: start: 20220819, end: 20220830
  2. LUMIGAN [Concomitant]
     Active Substance: BIMATOPROST
     Indication: Product used for unknown indication

REACTIONS (2)
  - Application site pruritus [Unknown]
  - Application site swelling [Unknown]

NARRATIVE: CASE EVENT DATE: 20220801
